FAERS Safety Report 16855420 (Version 1)
Quarter: 2019Q4

REPORT INFORMATION
  Report Type: Spontaneous
  Country: US (occurrence: US)
  Receive Date: 20190926
  Receipt Date: 20190926
  Transmission Date: 20200122
  Serious: Yes (Life-Threatening, Hospitalization, Disabling, Other)
  Sender: FDA-Public Use
  Company Number: None

PATIENT
  Age: 64 Year
  Sex: Female
  Weight: 81 kg

DRUGS (2)
  1. HIZENTRA [Suspect]
     Active Substance: HUMAN IMMUNOGLOBULIN G
     Indication: IMMUNODEFICIENCY COMMON VARIABLE
     Dates: start: 20130101
  2. RECLAST [Suspect]
     Active Substance: ZOLEDRONIC ACID
     Indication: STRESS FRACTURE
     Dosage: ?          OTHER ROUTE:IV?

REACTIONS (6)
  - Respiratory failure [None]
  - Acute myocardial infarction [None]
  - Hepatic failure [None]
  - Renal failure [None]
  - Corona virus infection [None]
  - Sepsis [None]

NARRATIVE: CASE EVENT DATE: 20180318
